FAERS Safety Report 11075216 (Version 1)
Quarter: 2015Q2

REPORT INFORMATION
  Report Type: Spontaneous
  Country: US (occurrence: None)
  Receive Date: 20150428
  Receipt Date: 20150428
  Transmission Date: 20150821
  Serious: Yes (Hospitalization)
  Sender: FDA-Public Use
  Company Number: None

PATIENT
  Age: 61 Year
  Sex: Female

DRUGS (1)
  1. IBRANCE [Suspect]
     Active Substance: PALBOCICLIB
     Indication: BREAST CANCER FEMALE
     Dosage: 125 MG, 1 TABLET DAILY, ORAL
     Route: 048
     Dates: start: 20150331

REACTIONS (4)
  - Thrombocytopenia [None]
  - Anaemia [None]
  - Respiratory tract infection [None]
  - Neutropenia [None]

NARRATIVE: CASE EVENT DATE: 20150423
